FAERS Safety Report 25222954 (Version 1)
Quarter: 2025Q2

REPORT INFORMATION
  Report Type: Spontaneous
  Country: GB (occurrence: GB)
  Receive Date: 20250422
  Receipt Date: 20250422
  Transmission Date: 20250717
  Serious: Yes (Other)
  Sender: TEVA
  Company Number: GB-MHRA-TPP32458155C5696165YC1744632118901

PATIENT
  Age: 11 Year
  Sex: Male
  Weight: 58 kg

DRUGS (5)
  1. LISDEXAMFETAMINE [Suspect]
     Active Substance: LISDEXAMFETAMINE
     Indication: Ill-defined disorder
     Dosage: AT 8AM
     Route: 048
     Dates: start: 20250407, end: 20250414
  2. MELATONIN [Concomitant]
     Active Substance: MELATONIN
     Indication: Ill-defined disorder
     Dosage: ONCE DAILY, ORALLY, 30 TO 60 ...
     Dates: start: 20250305, end: 20250404
  3. POLYETHYLENE GLYCOL 3350\POTASSIUM CHLORIDE\SODIUM BICARBONATE\SODIUM [Concomitant]
     Active Substance: POLYETHYLENE GLYCOL 3350\POTASSIUM CHLORIDE\SODIUM BICARBONATE\SODIUM CHLORIDE
     Indication: Ill-defined disorder
     Dates: start: 20230623
  4. METYROL [Concomitant]
     Indication: Ill-defined disorder
     Dosage: AT 8AM
     Route: 048
     Dates: start: 20250305, end: 20250404
  5. METHYLPHENIDATE [Concomitant]
     Active Substance: METHYLPHENIDATE
     Indication: Ill-defined disorder
     Dosage: AT AROUND 4...
     Route: 048
     Dates: start: 20250305, end: 20250404

REACTIONS (1)
  - Hallucination, visual [Recovering/Resolving]

NARRATIVE: CASE EVENT DATE: 20250412
